FAERS Safety Report 5087466-1 (Version None)
Quarter: 2006Q3

REPORT INFORMATION
  Report Type: 
  Country: None (occurrence: None)
  Receive Date: 20060824
  Receipt Date: 20060131
  Transmission Date: 20061208
  Serious: Yes (Hospitalization, Other)
  Sender: FDA-Public Use
  Company Number: US-BRISTOL-MYERS SQUIBB COMPANY-13264213

PATIENT
  Age: 46 Year
  Sex: Male

DRUGS (1)
  1. DASATINIB [Suspect]
     Indication: LEUKAEMIA
     Route: 048
     Dates: start: 20051202, end: 20060220

REACTIONS (5)
  - CHRONIC MYELOID LEUKAEMIA [None]
  - GRAFT VERSUS HOST DISEASE [None]
  - HYPOXIA [None]
  - INFECTION [None]
  - LOWER GASTROINTESTINAL HAEMORRHAGE [None]
